FAERS Safety Report 17052369 (Version 1)
Quarter: 2019Q4

REPORT INFORMATION
  Report Type: Report from Study
  Country: PE (occurrence: PE)
  Receive Date: 20191120
  Receipt Date: 20191120
  Transmission Date: 20200122
  Serious: Yes (Other)
  Sender: FDA-Public Use
  Company Number: PE-UCBSA-2019040921

PATIENT
  Age: 57 Year
  Sex: Male

DRUGS (2)
  1. TUSILEXIL [CARBOCISTEINE] [Concomitant]
     Indication: INFLUENZA
     Dosage: 10 MILLIGRAM EACH 8 HOURS
     Route: 048
     Dates: start: 20190918
  2. CERTOLIZUMAB PEGOL RA [Suspect]
     Active Substance: CERTOLIZUMAB PEGOL
     Indication: RHEUMATOID ARTHRITIS
     Dosage: 400 MILLIGRAM, MONTHLY (QM)
     Route: 058
     Dates: start: 20190115, end: 20190817

REACTIONS (3)
  - Respiratory tract infection [Recovered/Resolved]
  - Influenza [Not Recovered/Not Resolved]
  - Cough [Not Recovered/Not Resolved]

NARRATIVE: CASE EVENT DATE: 20190901
